FAERS Safety Report 8530786-6 (Version None)
Quarter: 2012Q3

REPORT INFORMATION
  Report Type: 
  Country: None (occurrence: None)
  Receive Date: 20120723
  Receipt Date: 20120713
  Transmission Date: 20120928
  Serious: Yes (Hospitalization)
  Sender: FDA-Public Use
  Company Number: CA-EISAI INC-E7389-02675-SPO-CA

PATIENT
  Age: 56 Year
  Sex: Female

DRUGS (1)
  1. HALAVEN [Suspect]
     Dosage: UNKNOWN
     Route: 041

REACTIONS (1)
  - PNEUMONIA [None]
